FAERS Safety Report 5943391-2 (Version None)
Quarter: 2008Q4

REPORT INFORMATION
  Report Type: 
  Country: None (occurrence: None)
  Receive Date: 20081104
  Receipt Date: 20081022
  Transmission Date: 20090506
  Serious: Yes (Death, Hospitalization)
  Sender: FDA-Public Use
  Company Number: 2008AL011496

PATIENT
  Age: 76 Year
  Sex: Male

DRUGS (8)
  1. DEXAMETHASONE [Suspect]
     Dosage: 8 MG; PO
     Route: 048
     Dates: start: 20080501, end: 20080601
  2. TAXOTERE [Concomitant]
  3. PREDNISOLONE [Concomitant]
  4. ALLOPURINOL [Concomitant]
  5. MAGNESIUM HYDROXIDE TAB [Concomitant]
  6. MOVICOL [Concomitant]
  7. TAMSULOSIN HCL [Concomitant]
  8. SOTALOL HCL [Concomitant]

REACTIONS (11)
  - APPENDICITIS [None]
  - ARRHYTHMIA [None]
  - CONSTIPATION [None]
  - HYPOTENSION [None]
  - ILEUS [None]
  - INTESTINAL PERFORATION [None]
  - NEUTROPENIA [None]
  - NO THERAPEUTIC RESPONSE [None]
  - RENAL FAILURE ACUTE [None]
  - SEPSIS [None]
  - URINARY RETENTION [None]
